FAERS Safety Report 6825604-8 (Version None)
Quarter: 2010Q3

REPORT INFORMATION
  Report Type: 
  Country: None (occurrence: None)
  Receive Date: 20100708
  Receipt Date: 20070221
  Transmission Date: 20110219
  Serious: No
  Sender: FDA-Public Use
  Company Number: US-PFIZER INC-2006153597

PATIENT
  Sex: Female
  Weight: 80.74 kg

DRUGS (4)
  1. CHANTIX [Suspect]
     Indication: SMOKING CESSATION THERAPY
     Dates: start: 20061101
  2. PREVACID [Concomitant]
  3. ATENOLOL [Concomitant]
  4. XANAX [Concomitant]

REACTIONS (7)
  - FEELING ABNORMAL [None]
  - HEADACHE [None]
  - INSOMNIA [None]
  - NAUSEA [None]
  - RASH [None]
  - RETCHING [None]
  - VOMITING [None]
